FAERS Safety Report 4973269-2 (Version None)
Quarter: 2006Q2

REPORT INFORMATION
  Report Type: 
  Country: None (occurrence: None)
  Receive Date: 20060414
  Receipt Date: 20050718
  Transmission Date: 20061013
  Serious: Yes (Hospitalization, Disabling)
  Sender: FDA-Public Use
  Company Number: US-MERCK-0507USA02863

PATIENT
  Age: 43 Year
  Sex: Female
  Weight: 100 kg

DRUGS (11)
  1. VIOXX [Suspect]
     Indication: PAIN
     Route: 048
     Dates: start: 20020114, end: 20040210
  2. VIOXX [Suspect]
     Route: 048
     Dates: start: 19990101, end: 20040701
  3. VIOXX [Suspect]
     Indication: RHEUMATOID ARTHRITIS
     Route: 048
     Dates: start: 20020114, end: 20040210
  4. VIOXX [Suspect]
     Route: 048
     Dates: start: 19990101, end: 20040701
  5. ALLEGRA [Concomitant]
     Route: 065
  6. FLEXERIL [Concomitant]
     Route: 048
  7. CLARITIN-D [Concomitant]
     Route: 065
  8. ZAROXOLYN [Concomitant]
     Route: 065
  9. ZANAFLEX [Concomitant]
     Route: 065
  10. NASONEX [Concomitant]
     Route: 065
  11. FLONASE [Concomitant]
     Route: 065

REACTIONS (29)
  - ASTHENIA [None]
  - BLOOD URIC ACID INCREASED [None]
  - BOTULISM [None]
  - CARDIAC MURMUR [None]
  - CERVICAL MYELOPATHY [None]
  - CHEST PAIN [None]
  - CHOLELITHIASIS [None]
  - CONVULSION [None]
  - EXOSTOSIS [None]
  - FACET JOINT SYNDROME [None]
  - FALL [None]
  - GASTROOESOPHAGEAL REFLUX DISEASE [None]
  - HYPOTHYROIDISM [None]
  - INTERVERTEBRAL DISC DEGENERATION [None]
  - JOINT SPRAIN [None]
  - KIDNEY SMALL [None]
  - NECK PAIN [None]
  - NEUROPATHY PERIPHERAL [None]
  - ONYCHOMYCOSIS [None]
  - OSTEOARTHRITIS [None]
  - PATELLOFEMORAL PAIN SYNDROME [None]
  - PLANTAR FASCIITIS [None]
  - SINUS DISORDER [None]
  - SINUS POLYP [None]
  - SINUSITIS [None]
  - SPINAL COLUMN STENOSIS [None]
  - TINEA PEDIS [None]
  - TRANSIENT ISCHAEMIC ATTACK [None]
  - VASCULITIS [None]
